FAERS Safety Report 17423777 (Version 1)
Quarter: 2020Q1

REPORT INFORMATION
  Report Type: Report from Study
  Country: IT (occurrence: IT)
  Receive Date: 20200217
  Receipt Date: 20200217
  Transmission Date: 20200409
  Serious: Yes (Other)
  Sender: FDA-Public Use
  Company Number: IT-ROCHE-2544984

PATIENT

DRUGS (3)
  1. BEVACIZUMAB. [Suspect]
     Active Substance: BEVACIZUMAB
     Indication: OVARIAN EPITHELIAL CANCER
     Route: 065
  2. CARBOPLATIN. [Suspect]
     Active Substance: CARBOPLATIN
     Indication: OVARIAN EPITHELIAL CANCER
     Route: 065
  3. NAB-PACLITAXEL [Suspect]
     Active Substance: PACLITAXEL
     Indication: OVARIAN EPITHELIAL CANCER
     Dosage: ON DAY 1 EVERY 3 WEEKS, IN 100 ML OF SODIUM CHLORIDE, OVER A PERIOD OF 3 MIN
     Route: 065

REACTIONS (22)
  - Hyponatraemia [Unknown]
  - Mucosal inflammation [Unknown]
  - Dysgeusia [Unknown]
  - Leukopenia [Unknown]
  - Neutropenia [Unknown]
  - Alopecia [Unknown]
  - Conjunctivitis [Unknown]
  - Myalgia [Unknown]
  - Hypertension [Unknown]
  - Asthenia [Unknown]
  - Hypertransaminasaemia [Unknown]
  - Anaemia [Unknown]
  - Nausea [Unknown]
  - Vomiting [Unknown]
  - Dyspnoea [Unknown]
  - Thrombocytopenia [Unknown]
  - Cholestasis [Unknown]
  - Hyperpyrexia [Unknown]
  - Diarrhoea [Unknown]
  - Stomatitis [Unknown]
  - Constipation [Unknown]
  - Peripheral sensory neuropathy [Unknown]
